FAERS Safety Report 4766124-4 (Version None)
Quarter: 2005Q3

REPORT INFORMATION
  Report Type: 
  Country: None (occurrence: None)
  Receive Date: 20050906
  Receipt Date: 20050822
  Transmission Date: 20060218
  Serious: Yes (Other)
  Sender: FDA-Public Use
  Company Number: 2005118775

PATIENT
  Age: 72 Year
  Sex: Male
  Weight: 73.4827 kg

DRUGS (4)
  1. CELEBREX [Suspect]
     Indication: ROTATOR CUFF SYNDROME
     Dosage: 200 MG (200 MG, 1 IN 1 D),
     Dates: start: 20040101, end: 20050101
  2. TOPROL-XL [Concomitant]
  3. ASPIRIN [Concomitant]
  4. IBUPROFEN [Concomitant]

REACTIONS (3)
  - AORTIC VALVE INCOMPETENCE [None]
  - DYSPNOEA [None]
  - HYPERTENSION [None]
